FAERS Safety Report 8799679 (Version 1)
Quarter: 2012Q4

REPORT INFORMATION
  Report Type: Spontaneous
  Country: US (occurrence: None)
  Receive Date: 20120918
  Receipt Date: 20120918
  Transmission Date: 20130627
  Serious: Yes (Other)
  Sender: FDA-Public Use
  Company Number: None

PATIENT
  Age: 48 Year
  Sex: Male
  Weight: 114.31 kg

DRUGS (9)
  1. RALTEGRAVIR [Suspect]
     Indication: HIV INFECTION
     Route: 048
     Dates: start: 20090909, end: 20111223
  2. TENOFOVIR DF + EMTRICITABINE [Suspect]
     Route: 048
     Dates: start: 20090109, end: 20111223
  3. FISH OIL [Concomitant]
  4. GABAPENTIN [Concomitant]
  5. HYDROCHLOROTHIAZIDE [Concomitant]
  6. TERBINAFINE (LAMISIL) [Concomitant]
  7. IBUPROFEN (MOTRIN) [Concomitant]
  8. VITAMIN D [Concomitant]
  9. BUPROPION [Concomitant]

REACTIONS (1)
  - Non-Hodgkin^s lymphoma stage III [None]
